FAERS Safety Report 15638390 (Version 4)
Quarter: 2020Q2

REPORT INFORMATION
  Report Type: Report from Study
  Country: CN (occurrence: CN)
  Receive Date: 20181120
  Receipt Date: 20200520
  Transmission Date: 20200713
  Serious: Yes (Hospitalization)
  Sender: FDA-Public Use
  Company Number: CN-JNJFOC-20181122407

PATIENT
  Age: 53 Year
  Sex: Male
  Weight: 75 kg

DRUGS (3)
  1. BEDAQUILINE [Suspect]
     Active Substance: BEDAQUILINE
     Indication: TUBERCULOSIS
     Route: 048
     Dates: start: 20180820, end: 2018
  2. CLOFAZIMINE [Suspect]
     Active Substance: CLOFAZIMINE
     Indication: TUBERCULOSIS
     Route: 065
     Dates: end: 201811
  3. BEDAQUILINE [Suspect]
     Active Substance: BEDAQUILINE
     Route: 048
     Dates: start: 201809, end: 201811

REACTIONS (1)
  - Atrial flutter [Recovering/Resolving]

NARRATIVE: CASE EVENT DATE: 20181113
